FAERS Safety Report 5128768-X (Version None)
Quarter: 2006Q4

REPORT INFORMATION
  Report Type: 
  Country: None (occurrence: None)
  Receive Date: 20061017
  Receipt Date: 20060710
  Transmission Date: 20070319
  Serious: Yes (Death, Hospitalization)
  Sender: FDA-Public Use
  Company Number: NL-BRISTOL-MYERS SQUIBB COMPANY-13436613

PATIENT
  Age: 68 Year
  Sex: Male
  Weight: 2 kg

DRUGS (7)
  1. CISPLATIN [Suspect]
     Indication: NON-SMALL CELL LUNG CANCER
     Route: 042
     Dates: start: 20051102, end: 20051102
  2. GEMCITABINE [Suspect]
     Indication: NON-SMALL CELL LUNG CANCER
     Route: 042
     Dates: start: 20051102, end: 20051102
  3. DICLOFENAC [Concomitant]
     Indication: PAIN
  4. ACETAMINOPHEN [Concomitant]
     Indication: PAIN
  5. ACENOCOUMAROL [Concomitant]
     Indication: PROPHYLAXIS
  6. FUROSEMIDE [Concomitant]
     Indication: FLUID RETENTION
     Dates: start: 20050829
  7. LOSEC [Concomitant]
     Indication: PROPHYLAXIS

REACTIONS (2)
  - GASTROENTERITIS [None]
  - MALIGNANT NEOPLASM PROGRESSION [None]
